FAERS Safety Report 13767545 (Version 2)
Quarter: 2017Q3

REPORT INFORMATION
  Report Type: Spontaneous
  Country: US (occurrence: US)
  Receive Date: 20170719
  Receipt Date: 20170719
  Transmission Date: 20171127
  Serious: No
  Sender: FDA-Public Use
  Company Number: US-TEVA-788360ACC

PATIENT
  Age: 28 Year
  Sex: Female
  Weight: 55.39 kg

DRUGS (1)
  1. PARAGARD T 380A [Suspect]
     Active Substance: COPPER
     Indication: CONTRACEPTION
     Dates: start: 20170711, end: 20170712

REACTIONS (3)
  - Pain [Unknown]
  - Complication associated with device [Unknown]
  - Vomiting [Unknown]

NARRATIVE: CASE EVENT DATE: 20170711
